FAERS Safety Report 8492419-7 (Version None)
Quarter: 2012Q3

REPORT INFORMATION
  Report Type: 
  Country: None (occurrence: None)
  Receive Date: 20120706
  Receipt Date: 20120622
  Transmission Date: 20120928
  Serious: Yes (Hospitalization)
  Sender: FDA-Public Use
  Company Number: US-ROCHE-1084248

PATIENT
  Sex: Female

DRUGS (10)
  1. SYMBICORT [Concomitant]
     Indication: CHRONIC OBSTRUCTIVE PULMONARY DISEASE
     Route: 065
  2. CHANTIX [Concomitant]
     Indication: TOBACCO USER
     Route: 048
  3. VITAMIN D [Concomitant]
     Indication: VITAMIN D DEFICIENCY
     Route: 048
  4. PROVENTIL [Concomitant]
     Indication: ASTHMA
     Route: 065
  5. KLONOPIN [Concomitant]
     Indication: ANXIETY
     Route: 048
  6. METOPROLOL [Concomitant]
     Indication: HYPERTENSION
  7. ZOLOFT [Concomitant]
     Indication: DEPRESSION
     Route: 048
  8. SINGULAIR [Concomitant]
     Indication: ASTHMA
     Route: 048
  9. METOPROLOL [Concomitant]
     Indication: CARDIAC FAILURE CONGESTIVE
     Route: 048
  10. DEMADEX [Suspect]
     Indication: PRODUCT USED FOR UNKNOWN INDICATION
     Route: 065
     Dates: start: 20120401, end: 20120601

REACTIONS (3)
  - DEHYDRATION [None]
  - PNEUMONIA [None]
  - HELICOBACTER GASTRITIS [None]
